FAERS Safety Report 25102383 (Version 4)
Quarter: 2025Q2

REPORT INFORMATION
  Report Type: Spontaneous
  Country: US (occurrence: US)
  Receive Date: 20250320
  Receipt Date: 20250606
  Transmission Date: 20250717
  Serious: Yes (Hospitalization, Other)
  Sender: ABBVIE
  Company Number: US-ABBVIE-6187489

PATIENT
  Age: 34 Year
  Sex: Female

DRUGS (3)
  1. ARMOUR THYROID [Suspect]
     Active Substance: THYROID, PORCINE
     Indication: Autoimmune thyroiditis
     Route: 048
  2. ARMOUR THYROID [Suspect]
     Active Substance: THYROID, PORCINE
     Indication: Autoimmune thyroiditis
     Route: 048
  3. SYNTHROID [Suspect]
     Active Substance: LEVOTHYROXINE SODIUM
     Indication: Autoimmune thyroiditis
     Route: 048

REACTIONS (22)
  - Hospitalisation [Unknown]
  - Hypertension [Recovering/Resolving]
  - Heart rate irregular [Unknown]
  - Tri-iodothyronine increased [Recovering/Resolving]
  - Product lot number issue [Unknown]
  - Dizziness [Recovering/Resolving]
  - Product expiration date issue [Unknown]
  - Expired product administered [Unknown]
  - Tri-iodothyronine decreased [Recovering/Resolving]
  - Off label use [Unknown]
  - Product physical issue [Unknown]
  - Product odour abnormal [Unknown]
  - Malaise [Recovering/Resolving]
  - Foreign body in throat [Unknown]
  - Chest pain [Unknown]
  - Anxiety [Unknown]
  - Musculoskeletal discomfort [Unknown]
  - Visual impairment [Unknown]
  - Balance disorder [Unknown]
  - Blood pressure abnormal [Unknown]
  - Atrial fibrillation [Unknown]
  - Oropharyngeal discomfort [Unknown]

NARRATIVE: CASE EVENT DATE: 20250101
